FAERS Safety Report 6700532-7 (Version None)
Quarter: 2010Q2

REPORT INFORMATION
  Report Type: 
  Country: None (occurrence: None)
  Receive Date: 20100428
  Receipt Date: 20100419
  Transmission Date: 20101027
  Serious: Yes (Hospitalization)
  Sender: FDA-Public Use
  Company Number: A0845256A

PATIENT
  Age: 52 Year
  Sex: Male
  Weight: 77.3 kg

DRUGS (4)
  1. ELTROMBOPAG [Suspect]
     Indication: THROMBOCYTOPENIA
     Route: 048
     Dates: start: 20091106
  2. PEG-INTRON [Suspect]
     Route: 058
     Dates: start: 20091105
  3. REBETOL [Suspect]
     Route: 048
     Dates: start: 20091105
  4. ELTROMBOPAG [Suspect]
     Route: 048
     Dates: start: 20091022, end: 20091105

REACTIONS (9)
  - ASTHENIA [None]
  - CHILLS [None]
  - DEHYDRATION [None]
  - FEBRILE NEUTROPENIA [None]
  - HYPOTENSION [None]
  - MALAISE [None]
  - OROPHARYNGEAL PAIN [None]
  - PANCYTOPENIA [None]
  - PRESYNCOPE [None]
